FAERS Safety Report 13541838 (Version 1)
Quarter: 2017Q2

REPORT INFORMATION
  Report Type: Spontaneous
  Country: KR (occurrence: KR)
  Receive Date: 20170512
  Receipt Date: 20170512
  Transmission Date: 20170830
  Serious: Yes (Hospitalization)
  Sender: FDA-Public Use
  Company Number: KR-ELI_LILLY_AND_COMPANY-KR201705002694

PATIENT
  Sex: Male

DRUGS (1)
  1. TRULICITY [Suspect]
     Active Substance: DULAGLUTIDE
     Indication: DIABETES MELLITUS
     Dosage: 0.75 MG, UNKNOWN
     Route: 058
     Dates: start: 201704, end: 201704

REACTIONS (6)
  - Blood glucose increased [Unknown]
  - Asthenia [Unknown]
  - Viral upper respiratory tract infection [Unknown]
  - Dry mouth [Unknown]
  - Insomnia [Unknown]
  - Oral discomfort [Unknown]

NARRATIVE: CASE EVENT DATE: 201704
